FAERS Safety Report 17808224 (Version 1)
Quarter: 2020Q2

REPORT INFORMATION
  Report Type: Spontaneous
  Country: US (occurrence: US)
  Receive Date: 20200520
  Receipt Date: 20200520
  Transmission Date: 20200714
  Serious: Yes (Other)
  Sender: FDA-Public Use
  Company Number: None

PATIENT
  Sex: Female
  Weight: 74.84 kg

DRUGS (2)
  1. EYLEA [Suspect]
     Active Substance: AFLIBERCEPT
     Dates: start: 20200520
  2. CENTRUM [Concomitant]
     Active Substance: VITAMINS

REACTIONS (3)
  - Blindness [None]
  - Ocular discomfort [None]
  - Eye pain [None]
